FAERS Safety Report 5782957-X (Version None)
Quarter: 2008Q2

REPORT INFORMATION
  Report Type: 
  Country: None (occurrence: None)
  Receive Date: 20080624
  Receipt Date: 20080610
  Transmission Date: 20081010
  Serious: Yes (Other)
  Sender: FDA-Public Use
  Company Number: PHHY2008GB10627

PATIENT
  Age: 85 Year
  Sex: Female

DRUGS (3)
  1. LETROZOLE [Suspect]
  2. ALENDRONIC ACID [Concomitant]
  3. ZOPLICONE [Concomitant]

REACTIONS (1)
  - NEUTROPENIA [None]
